FAERS Safety Report 23268291 (Version 1)
Quarter: 2023Q4

REPORT INFORMATION
  Report Type: Spontaneous
  Country: US (occurrence: US)
  Receive Date: 20231206
  Receipt Date: 20231206
  Transmission Date: 20240109
  Serious: Yes (Life-Threatening, Other)
  Sender: FDA-Public Use
  Company Number: US-PFIZER INC-PV202300192103

PATIENT
  Age: 47 Year
  Sex: Male

DRUGS (19)
  1. LEVETIRACETAM [Suspect]
     Active Substance: LEVETIRACETAM
     Indication: Seizure
     Dosage: UNK
  2. LEVETIRACETAM [Suspect]
     Active Substance: LEVETIRACETAM
     Indication: Epilepsy
  3. ARGININE HYDROCHLORIDE [Suspect]
     Active Substance: ARGININE HYDROCHLORIDE
     Indication: Seizure
     Dosage: 400 MG, DAILY
  4. ARGININE HYDROCHLORIDE [Suspect]
     Active Substance: ARGININE HYDROCHLORIDE
     Indication: Epilepsy
  5. LAMOTRIGINE [Suspect]
     Active Substance: LAMOTRIGINE
     Indication: Seizure
     Dosage: UNK
  6. LAMOTRIGINE [Suspect]
     Active Substance: LAMOTRIGINE
     Indication: Epilepsy
  7. LAMOTRIGINE [Suspect]
     Active Substance: LAMOTRIGINE
     Indication: Autism spectrum disorder
  8. TIAGABINE [Suspect]
     Active Substance: TIAGABINE
     Indication: Epilepsy
     Dosage: UNK
  9. TIAGABINE [Suspect]
     Active Substance: TIAGABINE
     Indication: Seizure
  10. TIAGABINE [Suspect]
     Active Substance: TIAGABINE
     Indication: Autism spectrum disorder
  11. CLONAZEPAM [Suspect]
     Active Substance: CLONAZEPAM
     Indication: Seizure
     Dosage: UNK
  12. CLONAZEPAM [Suspect]
     Active Substance: CLONAZEPAM
     Indication: Epilepsy
  13. CLONAZEPAM [Suspect]
     Active Substance: CLONAZEPAM
     Indication: Autism spectrum disorder
  14. CREATININE [Suspect]
     Active Substance: CREATININE
     Indication: Seizure
     Dosage: 300 MG/KG, DAILY
  15. CREATININE [Suspect]
     Active Substance: CREATININE
     Indication: Epilepsy
  16. CREATININE [Suspect]
     Active Substance: CREATININE
     Indication: Autism spectrum disorder
  17. GLYCINE [Suspect]
     Active Substance: GLYCINE
     Indication: Seizure
     Dosage: 150 MG/KG, DAILY
  18. GLYCINE [Suspect]
     Active Substance: GLYCINE
     Indication: Epilepsy
  19. GLYCINE [Suspect]
     Active Substance: GLYCINE
     Indication: Autism spectrum disorder

REACTIONS (2)
  - Treatment failure [Unknown]
  - Drug resistance [Unknown]
